FAERS Safety Report 24710977 (Version 1)
Quarter: 2024Q4

REPORT INFORMATION
  Report Type: Report from Study
  Country: CA (occurrence: CA)
  Receive Date: 20241209
  Receipt Date: 20241209
  Transmission Date: 20250115
  Serious: Yes (Other)
  Sender: ACCORD
  Company Number: None

PATIENT
  Age: 65 Year
  Sex: Female

DRUGS (16)
  1. APIXABAN [Suspect]
     Active Substance: APIXABAN
     Indication: Atrial fibrillation
  2. MAVACAMTEN [Suspect]
     Active Substance: MAVACAMTEN
     Indication: Hypertrophic cardiomyopathy
     Dosage: 1 EVERY 1 DAYS
     Route: 048
  3. SOTALOL [Suspect]
     Active Substance: SOTALOL
     Indication: Atrial fibrillation
  4. EVOLOCUMAB [Concomitant]
     Active Substance: EVOLOCUMAB
     Dosage: SOLUTION
  5. ERGOCALCIFEROL [Concomitant]
     Active Substance: ERGOCALCIFEROL
  6. EMPAGLIFLOZIN [Concomitant]
     Active Substance: EMPAGLIFLOZIN
     Dosage: 1 EVERY 1 DAYS
  7. TYLENOL [Concomitant]
     Active Substance: ACETAMINOPHEN
     Dosage: EXTENDED RELEASE TABLET
  8. GRAVOL [Concomitant]
     Active Substance: DIMENHYDRINATE
  9. VITAMIN B COMPLEX [Concomitant]
     Active Substance: CYANOCOBALAMIN\DEXPANTHENOL\NIACINAMIDE\PYRIDOXINE HYDROCHLORIDE\RIBOFLAVIN 5^-PHOSPHATE SODIUM\THIA
  10. CALCIUM [Concomitant]
     Active Substance: CALCIUM
  11. SEMAGLUTIDE [Concomitant]
     Active Substance: SEMAGLUTIDE
     Dosage: SOLUTION SUBCUTANEOUS
  12. CYANOCOBALAMIN [Concomitant]
     Active Substance: CYANOCOBALAMIN
  13. PANTOPRAZOLE [Concomitant]
     Active Substance: PANTOPRAZOLE
  14. LETROZOLE [Concomitant]
     Active Substance: LETROZOLE
     Dosage: 1 EVERY 1 DAYS
  15. MAVACAMTEN [Suspect]
     Active Substance: MAVACAMTEN
     Indication: Hypertrophic cardiomyopathy
     Dosage: 1 EVERY 1 DAYS
     Route: 048
  16. MAVACAMTEN [Suspect]
     Active Substance: MAVACAMTEN
     Indication: Hypertrophic cardiomyopathy
     Dosage: 1 EVERY 1 DAYS
     Route: 048

REACTIONS (3)
  - Alopecia [Unknown]
  - Atrial fibrillation [Unknown]
  - Viral infection [Unknown]
